FAERS Safety Report 6041194-4 (Version None)
Quarter: 2009Q1

REPORT INFORMATION
  Report Type: 
  Country: None (occurrence: None)
  Receive Date: 20090116
  Receipt Date: 20080915
  Transmission Date: 20090719
  Serious: No
  Sender: FDA-Public Use
  Company Number: US-BRISTOL-MYERS SQUIBB COMPANY-14336127

PATIENT
  Age: 26 Year
  Sex: Female
  Weight: 68 kg

DRUGS (7)
  1. ABILIFY [Suspect]
     Indication: BIPOLAR DISORDER
     Dosage: 1 DOSAGE FORM= 1/2 TAB, STARTED WITH ABILIFY 2 MG 1/2 TAB QD, INCREASED TO 2MG AND REDUCED TO 1 MG.
  2. ALBUTEROL [Concomitant]
  3. ATROVENT [Concomitant]
  4. AMITRIPTYLINE HCL [Concomitant]
  5. RITALIN [Concomitant]
  6. LORAZEPAM [Concomitant]
  7. GLIMEPIRIDE [Concomitant]

REACTIONS (3)
  - MANIA [None]
  - NIPPLE DISORDER [None]
  - NIPPLE PAIN [None]
